FAERS Safety Report 19839040 (Version 1)
Quarter: 2021Q3

REPORT INFORMATION
  Report Type: Spontaneous
  Country: US (occurrence: US)
  Receive Date: 20210915
  Receipt Date: 20210915
  Transmission Date: 20211014
  Serious: Yes (Life-Threatening, Hospitalization)
  Sender: FDA-Public Use
  Company Number: None

PATIENT
  Age: 89 Year
  Sex: Female

DRUGS (1)
  1. WARFARIN [Suspect]
     Active Substance: WARFARIN

REACTIONS (5)
  - Haemoglobin decreased [None]
  - Haematemesis [None]
  - International normalised ratio increased [None]
  - Duodenal ulcer [None]
  - Haematochezia [None]

NARRATIVE: CASE EVENT DATE: 20210618
